FAERS Safety Report 21746943 (Version 1)
Quarter: 2022Q4

REPORT INFORMATION
  Report Type: Spontaneous
  Country: US (occurrence: None)
  Receive Date: 20221216
  Receipt Date: 20221216
  Transmission Date: 20230113
  Serious: No
  Sender: FDA-Public Use
  Company Number: None

PATIENT
  Age: 70 Year
  Sex: Male
  Weight: 100.24 kg

DRUGS (8)
  1. EVEROLIMUS [Suspect]
     Active Substance: EVEROLIMUS
     Indication: Thyroid cancer
     Dosage: 5MG DAILY ORAL
     Route: 048
     Dates: start: 202205, end: 20221216
  2. ATIVAN [Concomitant]
     Active Substance: LORAZEPAM
  3. INDOMETHACIN [Concomitant]
     Active Substance: INDOMETHACIN
  4. MORPHINE [Concomitant]
     Active Substance: MORPHINE
  5. OXYCODONE [Concomitant]
     Active Substance: OXYCODONE
  6. SYNTHROID [Concomitant]
     Active Substance: LEVOTHYROXINE SODIUM
  7. TUMS [Concomitant]
     Active Substance: CALCIUM CARBONATE
  8. TYLENOL [Concomitant]
     Active Substance: ACETAMINOPHEN

REACTIONS (2)
  - Surgery [None]
  - Therapy interrupted [None]

NARRATIVE: CASE EVENT DATE: 20221216
